FAERS Safety Report 9770293 (Version 4)
Quarter: 2014Q1

REPORT INFORMATION
  Report Type: Spontaneous
  Country: JP (occurrence: JP)
  Receive Date: 20131218
  Receipt Date: 20140212
  Transmission Date: 20141002
  Serious: Yes (Hospitalization)
  Sender: FDA-Public Use
  Company Number: JP-ASTRAZENECA-2013SE90853

PATIENT
  Age: 77 Year
  Sex: Male
  Weight: 55 kg

DRUGS (8)
  1. NEXIUM [Suspect]
     Indication: GASTROOESOPHAGEAL REFLUX DISEASE
     Route: 048
     Dates: start: 20131118, end: 20131130
  2. VASOLAN [Concomitant]
     Route: 048
  3. SELBEX [Concomitant]
     Route: 048
  4. WARFARIN [Concomitant]
     Route: 048
  5. ADALAT-CR [Concomitant]
     Route: 048
     Dates: start: 20110820
  6. OLMETEC [Concomitant]
     Route: 048
     Dates: start: 20111213
  7. FOIPAN [Concomitant]
     Route: 048
     Dates: start: 20110830
  8. AMLODIN [Concomitant]
     Route: 048
     Dates: start: 20130131

REACTIONS (5)
  - Eosinophilic pneumonia [Recovering/Resolving]
  - Decreased appetite [Unknown]
  - Therapy cessation [Unknown]
  - Diarrhoea [Recovered/Resolved]
  - Malaise [Unknown]
